FAERS Safety Report 9880269 (Version 1)
Quarter: 2014Q1

REPORT INFORMATION
  Report Type: Spontaneous
  Country: IT (occurrence: IT)
  Receive Date: 20140207
  Receipt Date: 20140207
  Transmission Date: 20141002
  Serious: Yes (Other)
  Sender: FDA-Public Use
  Company Number: IT-DRREDDYS-GER/ITL/14/0037689

PATIENT
  Age: 77 Year
  Sex: Female

DRUGS (4)
  1. IRBESARTAN [Suspect]
     Indication: CARDIAC FIBRILLATION
     Route: 048
     Dates: start: 20131210, end: 20131223
  2. ACETYLSALICYLIC ACID [Suspect]
     Indication: CARDIAC FIBRILLATION
     Route: 048
     Dates: start: 20131210, end: 20131223
  3. PROPAFENONE HYDROCHLORIDE [Suspect]
     Indication: PALPITATIONS
     Route: 048
     Dates: start: 20131210, end: 20131223
  4. LOBIVON [Concomitant]
     Indication: HYPERTENSION
     Route: 048

REACTIONS (3)
  - Hypertension [Recovered/Resolved]
  - Atrial fibrillation [Recovered/Resolved]
  - Drug ineffective [Unknown]
